FAERS Safety Report 8013722-0 (Version None)
Quarter: 2011Q4

REPORT INFORMATION
  Report Type: 
  Country: None (occurrence: None)
  Receive Date: 20111229
  Receipt Date: 20111216
  Transmission Date: 20120403
  Serious: Yes (Other)
  Sender: FDA-Public Use
  Company Number: US-ELI_LILLY_AND_COMPANY-US201111008017

PATIENT
  Age: 83 Year
  Sex: Female

DRUGS (2)
  1. FORTEO [Suspect]
     Indication: OSTEOPOROSIS
     Dosage: 20 UG, QD
     Dates: start: 20111111
  2. FORTEO [Suspect]
     Dosage: 20 UG, QD

REACTIONS (4)
  - BLINDNESS TRANSIENT [None]
  - BLOOD PRESSURE ABNORMAL [None]
  - PAIN [None]
  - BONE PAIN [None]
